FAERS Safety Report 7869050-7 (Version None)
Quarter: 2011Q4

REPORT INFORMATION
  Report Type: 
  Country: None (occurrence: None)
  Receive Date: 20111026
  Receipt Date: 20111026
  Transmission Date: 20120403
  Serious: Yes (Life-Threatening)
  Sender: FDA-Public Use
  Company Number: None

PATIENT
  Age: 58 Year
  Sex: Male
  Weight: 98.8 kg

DRUGS (2)
  1. PAMIDRONATE DISODIUM [Suspect]
     Indication: RENAL CELL CARCINOMA
     Dosage: 90 MG OTHER IV
     Route: 042
     Dates: start: 20111019, end: 20111019
  2. LISINOPRIL [Suspect]
     Indication: HYPERTENSION
     Dosage: 40 MG EVERY DAY PO
     Route: 048
     Dates: start: 20050901, end: 20111021

REACTIONS (1)
  - ANGIOEDEMA [None]
